FAERS Safety Report 5026142-8 (Version None)
Quarter: 2006Q2

REPORT INFORMATION
  Report Type: 
  Country: None (occurrence: None)
  Receive Date: 20060608
  Receipt Date: 20011214
  Transmission Date: 20061013
  Serious: No
  Sender: FDA-Public Use
  Company Number: 2001-12-1251

PATIENT
  Age: 54 Year
  Sex: Female

DRUGS (8)
  1. ETHYOL [Suspect]
     Indication: ADVERSE DRUG REACTION
     Dosage: SUBCUTANEOUS
     Route: 058
     Dates: start: 20010321, end: 20010516
  2. TAXOL [Concomitant]
  3. SOLU-MEDROL [Concomitant]
  4. PROCRIT [Concomitant]
  5. HERCEPTIN [Concomitant]
  6. BENADRYL [Concomitant]
  7. ZANTAC [Concomitant]
  8. ANZEMET [Concomitant]

REACTIONS (5)
  - ABDOMINAL PAIN [None]
  - DYSPNOEA [None]
  - FACE OEDEMA [None]
  - OCULAR HYPERAEMIA [None]
  - TACHYCARDIA [None]
